FAERS Safety Report 9051905 (Version 1)
Quarter: 2013Q1

REPORT INFORMATION
  Report Type: Spontaneous
  Country: US (occurrence: None)
  Receive Date: 20130130
  Receipt Date: 20130130
  Transmission Date: 20140127
  Serious: Yes (Hospitalization)
  Sender: FDA-Public Use
  Company Number: None

PATIENT
  Age: 84 Year
  Sex: Male
  Weight: 97 kg

DRUGS (2)
  1. INSULIN DETEMIR [Suspect]
  2. METFORMIN 1000 MG [Suspect]
     Route: 048

REACTIONS (1)
  - Hypoglycaemia [None]
